FAERS Safety Report 8200636-6 (Version None)
Quarter: 2012Q1

REPORT INFORMATION
  Report Type: 
  Country: None (occurrence: None)
  Receive Date: 20120312
  Receipt Date: 20120309
  Transmission Date: 20120608
  Serious: Yes (Death, Other)
  Sender: FDA-Public Use
  Company Number: AU-B.I. PHARMACEUTICALS,INC./RIDGEFIELD-2012-AU-00511AU

PATIENT
  Sex: Male

DRUGS (1)
  1. PRADAXA [Suspect]
     Dosage: 220 MG
     Dates: start: 20110815, end: 20110905

REACTIONS (5)
  - LEG AMPUTATION [None]
  - SEPSIS [None]
  - DEATH [None]
  - EMBOLISM ARTERIAL [None]
  - RENAL IMPAIRMENT [None]
